FAERS Safety Report 17974296 (Version 1)
Quarter: 2020Q3

REPORT INFORMATION
  Report Type: Spontaneous
  Country: BR (occurrence: BR)
  Receive Date: 20200702
  Receipt Date: 20200702
  Transmission Date: 20201103
  Serious: Yes (Other)
  Sender: FDA-Public Use
  Company Number: BR-PFIZER INC-2020253969

PATIENT
  Sex: Male

DRUGS (1)
  1. LONITEN [Suspect]
     Active Substance: MINOXIDIL
     Indication: HYPOTENSION
     Dosage: UNK

REACTIONS (1)
  - Renal failure [Unknown]
